FAERS Safety Report 25659405 (Version 1)
Quarter: 2025Q3

REPORT INFORMATION
  Report Type: Spontaneous
  Country: US (occurrence: US)
  Receive Date: 20250808
  Receipt Date: 20250808
  Transmission Date: 20251021
  Serious: No
  Sender: AMGEN
  Company Number: US-AMGEN-USASP2025154459

PATIENT
  Sex: Female

DRUGS (2)
  1. ENBREL [Suspect]
     Active Substance: ETANERCEPT
     Indication: Psoriatic arthropathy
     Route: 058
  2. ENBREL [Suspect]
     Active Substance: ETANERCEPT
     Route: 058

REACTIONS (9)
  - Impaired healing [Unknown]
  - Bronchitis [Recovered/Resolved]
  - Eye colour change [Unknown]
  - COVID-19 [Recovered/Resolved]
  - Yellow skin [Unknown]
  - Respiratory tract infection [Recovered/Resolved]
  - Vomiting [Unknown]
  - Yellow skin [Unknown]
  - Vitiligo [Not Recovered/Not Resolved]
